FAERS Safety Report 18363387 (Version 1)
Quarter: 2020Q4

REPORT INFORMATION
  Report Type: Spontaneous
  Country: US (occurrence: US)
  Receive Date: 20201009
  Receipt Date: 20201009
  Transmission Date: 20210114
  Serious: No
  Sender: FDA-Public Use
  Company Number: US-TEVA-2020-US-1836687

PATIENT
  Age: 65 Year
  Sex: Male

DRUGS (1)
  1. CARVEDILOL TEVA [Suspect]
     Active Substance: CARVEDILOL
     Route: 065
     Dates: start: 2020

REACTIONS (5)
  - Illness [Recovering/Resolving]
  - Mobility decreased [Recovering/Resolving]
  - Blood pressure fluctuation [Recovering/Resolving]
  - Feeling abnormal [Recovering/Resolving]
  - Product substitution issue [Unknown]

NARRATIVE: CASE EVENT DATE: 2020
